FAERS Safety Report 6407097-8 (Version None)
Quarter: 2009Q4

REPORT INFORMATION
  Report Type: 
  Country: None (occurrence: None)
  Receive Date: 20091020
  Receipt Date: 20091007
  Transmission Date: 20100525
  Serious: Yes (Death, Hospitalization, Other)
  Sender: FDA-Public Use
  Company Number: US-NOVOPROD-248655

PATIENT
  Sex: Female

DRUGS (11)
  1. ACTIVELLA [Suspect]
     Indication: MENOPAUSAL SYMPTOMS
     Dosage: UNKNOWN
     Route: 048
     Dates: start: 20000816
  2. PREMPRO [Suspect]
     Indication: MENOPAUSAL SYMPTOMS
     Dates: start: 19970701, end: 20020301
  3. PROVERA [Suspect]
     Indication: MENOPAUSAL SYMPTOMS
     Dosage: 10 MG, UNK
     Dates: start: 19960501, end: 19970301
  4. PREMARIN [Suspect]
     Indication: MENOPAUSAL SYMPTOMS
     Dosage: UNK, UNK
     Dates: start: 19970301, end: 19970601
  5. PAXIL [Concomitant]
     Indication: ILL-DEFINED DISORDER
     Dosage: 20 MG, UNK
     Dates: start: 20000101
  6. TOPROL-XL [Concomitant]
     Indication: ILL-DEFINED DISORDER
     Dosage: 50 MG, UNK
     Dates: start: 20000101
  7. ASPIRIN [Concomitant]
     Indication: ILL-DEFINED DISORDER
  8. COUMADIN [Concomitant]
     Indication: ILL-DEFINED DISORDER
     Dosage: 5 MG, UNK
     Dates: start: 19990101
  9. ASPIRIN [Concomitant]
     Dates: end: 20040101
  10. LANOXIN [Concomitant]
     Indication: HEART RATE IRREGULAR
     Dates: start: 19960101, end: 20000101
  11. TOPOROL [Concomitant]
     Indication: HEART RATE IRREGULAR
     Dates: start: 20000101

REACTIONS (2)
  - BREAST CANCER METASTATIC [None]
  - METASTASES TO MENINGES [None]
